FAERS Safety Report 7028152-8 (Version None)
Quarter: 2010Q3

REPORT INFORMATION
  Report Type: 
  Country: None (occurrence: None)
  Receive Date: 20100930
  Receipt Date: 20100421
  Transmission Date: 20110219
  Serious: Yes (Life-Threatening, Hospitalization)
  Sender: FDA-Public Use
  Company Number: DSA_42928_2010

PATIENT
  Age: 67 Year
  Sex: Male

DRUGS (14)
  1. BUPROPION [Suspect]
     Indication: PRODUCT USED FOR UNKNOWN INDICATION
     Dosage: DF, 150 MG QD ORAL, 150 MG BID ORAL
     Route: 048
     Dates: start: 20090101, end: 20090101
  2. BUPROPION [Suspect]
     Indication: PRODUCT USED FOR UNKNOWN INDICATION
     Dosage: DF, 150 MG QD ORAL, 150 MG BID ORAL
     Route: 048
     Dates: start: 20090101, end: 20090101
  3. CARDIZEM [Suspect]
     Indication: HEART RATE INCREASED
     Dosage: DF INTRAVENOUS DRIP, DF ORAL
     Route: 041
     Dates: start: 20090101, end: 20090101
  4. CARDIZEM [Suspect]
     Indication: HEART RATE INCREASED
     Dosage: DF INTRAVENOUS DRIP, DF ORAL
     Route: 041
     Dates: start: 20090101, end: 20090101
  5. PLAVIX [Suspect]
     Indication: CORONARY ARTERIAL STENT INSERTION
  6. PLAVIX [Suspect]
     Indication: CORONARY ARTERY DISEASE
  7. ANTI-SMOKING AGENTS [Suspect]
     Indication: SMOKING CESSATION THERAPY
     Dosage: 0.5 MG QD ORAL
     Route: 048
     Dates: start: 20090104, end: 20090108
  8. COUMADIN [Suspect]
     Indication: ATRIAL FIBRILLATION
     Dosage: DF ORAL
     Route: 048
  9. LIPITOR [Concomitant]
  10. ASPIRIN [Concomitant]
  11. SIMVASTATIN [Concomitant]
  12. METOPROLOL TARTRATE [Concomitant]
  13. DIGOXIN [Concomitant]
  14. ANTIBIOTICS [Concomitant]

REACTIONS (20)
  - ABASIA [None]
  - ABNORMAL DREAMS [None]
  - AGITATION [None]
  - ANGER [None]
  - ATRIAL FIBRILLATION [None]
  - BLOOD CHOLESTEROL INCREASED [None]
  - CEREBRAL HAEMATOMA [None]
  - CHRONIC OBSTRUCTIVE PULMONARY DISEASE [None]
  - CORONARY ARTERY OCCLUSION [None]
  - HALLUCINATION [None]
  - HYPERTENSION [None]
  - HYPOTENSION [None]
  - INSOMNIA [None]
  - INTRACRANIAL ANEURYSM [None]
  - MYOCARDIAL INFARCTION [None]
  - PALPITATIONS [None]
  - PLEURAL EFFUSION [None]
  - PNEUMONIA [None]
  - POOR QUALITY SLEEP [None]
  - UNEVALUABLE EVENT [None]
